FAERS Safety Report 19279952 (Version 15)
Quarter: 2022Q1

REPORT INFORMATION
  Report Type: Report from Study
  Country: US (occurrence: US)
  Receive Date: 20210520
  Receipt Date: 20220104
  Transmission Date: 20220423
  Serious: Yes (Hospitalization, Other)
  Sender: FDA-Public Use
  Company Number: US-CLOVIS ONCOLOGY-CLO-2021-000759

PATIENT
  Age: 83 Year
  Sex: Female

DRUGS (13)
  1. RUBRACA [Suspect]
     Active Substance: RUCAPARIB CAMSYLATE
     Indication: Ovarian cancer
     Dosage: 600 MILLIGRAM, BID
     Route: 048
     Dates: start: 20170923, end: 201807
  2. RUBRACA [Suspect]
     Active Substance: RUCAPARIB CAMSYLATE
     Indication: Ovarian cancer
     Dosage: UNKNOWN DOSE
     Dates: start: 20210429
  3. RUBRACA [Suspect]
     Active Substance: RUCAPARIB CAMSYLATE
     Dosage: 300 MILLIGRAM, BID
     Route: 048
     Dates: start: 201709
  4. RUBRACA [Suspect]
     Active Substance: RUCAPARIB CAMSYLATE
     Dosage: 300 MILLIGRAM, BID
     Route: 048
     Dates: start: 202104
  5. RUBRACA [Suspect]
     Active Substance: RUCAPARIB CAMSYLATE
     Dosage: 300 MILLIGRAM, BID
     Route: 048
     Dates: start: 20210503
  6. RUBRACA [Suspect]
     Active Substance: RUCAPARIB CAMSYLATE
     Dosage: 300 MILLIGRAM, BID
     Route: 048
     Dates: start: 20211127
  7. RUBRACA [Suspect]
     Active Substance: RUCAPARIB CAMSYLATE
     Dosage: 300 MILLIGRAM, BID
     Route: 048
     Dates: start: 20210612
  8. FUROSEMIDE [Suspect]
     Active Substance: FUROSEMIDE
     Indication: Product used for unknown indication
  9. PRAVASTATIN [Concomitant]
     Active Substance: PRAVASTATIN
     Indication: Product used for unknown indication
     Dosage: UNK
  10. SENNA PLUS [SENNA ALEXANDRINA] [Concomitant]
     Indication: Product used for unknown indication
     Dosage: UNK
  11. BYSTOLIC [Concomitant]
     Active Substance: NEBIVOLOL HYDROCHLORIDE
     Indication: Hypertension
     Dosage: UNK
  12. ACETAMINOPHEN [Concomitant]
     Active Substance: ACETAMINOPHEN
     Indication: Product used for unknown indication
  13. VITAMIN D3 [Concomitant]
     Active Substance: CHOLECALCIFEROL
     Indication: Product used for unknown indication

REACTIONS (27)
  - Colon cancer [Unknown]
  - Hypotension [Recovering/Resolving]
  - Anaemia [Not Recovered/Not Resolved]
  - Recurrent cancer [Unknown]
  - Feeling abnormal [Unknown]
  - Gait disturbance [Unknown]
  - Anxiety [Unknown]
  - Joint swelling [Not Recovered/Not Resolved]
  - Nocturia [Not Recovered/Not Resolved]
  - Renal disorder [Unknown]
  - Gastrointestinal stoma complication [Unknown]
  - Burning sensation [Not Recovered/Not Resolved]
  - Spondylitis [Unknown]
  - Procedural site reaction [Unknown]
  - Weight decreased [Unknown]
  - Peripheral swelling [Recovering/Resolving]
  - Oedema peripheral [Recovering/Resolving]
  - Memory impairment [Unknown]
  - Constipation [Recovering/Resolving]
  - Abdominal pain upper [Unknown]
  - Taste disorder [Recovered/Resolved]
  - Fatigue [Not Recovered/Not Resolved]
  - Dyspnoea [Unknown]
  - Dizziness [Recovered/Resolved]
  - Dizziness [Unknown]
  - Diarrhoea [Recovering/Resolving]
  - Product dose omission in error [Unknown]

NARRATIVE: CASE EVENT DATE: 20180701
